FAERS Safety Report 9728058 (Version 1)
Quarter: 2013Q4

REPORT INFORMATION
  Report Type: Spontaneous
  Country: AU (occurrence: AU)
  Receive Date: 20131204
  Receipt Date: 20131204
  Transmission Date: 20140711
  Serious: Yes (Hospitalization)
  Sender: FDA-Public Use
  Company Number: AU-ASTRAZENECA-2013SE87206

PATIENT
  Age: 57 Year
  Sex: Female
  Weight: 73 kg

DRUGS (6)
  1. NEXIUM [Suspect]
     Route: 048
     Dates: start: 20130213
  2. HUMIRA [Suspect]
     Dates: start: 20130821, end: 20131024
  3. HUMIRA [Suspect]
  4. IRBESARTAN [Concomitant]
     Dates: start: 20130717
  5. PARACETAMOL [Concomitant]
     Dates: start: 20120729
  6. PREDNISOLONE [Concomitant]
     Dates: start: 20120729

REACTIONS (5)
  - Renal failure acute [Recovered/Resolved]
  - Glomerulonephritis [Recovered/Resolved]
  - Haematuria [Unknown]
  - Urine cytology abnormal [Unknown]
  - Proteinuria [Unknown]
